FAERS Safety Report 9527613 (Version 1)
Quarter: 2013Q3

REPORT INFORMATION
  Report Type: Spontaneous
  Country: US (occurrence: None)
  Receive Date: 20130913
  Receipt Date: 20130913
  Transmission Date: 20140515
  Serious: Yes (Disabling)
  Sender: FDA-Public Use
  Company Number: None

PATIENT
  Age: 26 Year
  Sex: Female
  Weight: 63.5 kg

DRUGS (2)
  1. BOTOX [Suspect]
     Indication: SKIN COSMETIC PROCEDURE
     Dosage: AS NEEDED
     Dates: start: 20100924
  2. MULTIVITAMINS [Concomitant]

REACTIONS (7)
  - Choking [None]
  - Nervous system disorder [None]
  - Panic attack [None]
  - Convulsion [None]
  - Stress [None]
  - Extrapyramidal disorder [None]
  - Vertigo [None]
